FAERS Safety Report 23633336 (Version 1)
Quarter: 2024Q1

REPORT INFORMATION
  Report Type: Spontaneous
  Country: US (occurrence: US)
  Receive Date: 20240314
  Receipt Date: 20240314
  Transmission Date: 20240410
  Serious: Yes (Other)
  Sender: FDA-Public Use
  Company Number: US-GLAND PHARMA LIMITED-2024US000881

PATIENT
  Age: 67 Year
  Sex: Male

DRUGS (1)
  1. AMIODARONE HYDROCHLORIDE [Suspect]
     Active Substance: AMIODARONE HYDROCHLORIDE
     Indication: Ventricular extrasystoles
     Dosage: 200 MG, DAILY
     Route: 065

REACTIONS (3)
  - Bone marrow granuloma [Recovered/Resolved]
  - Product use in unapproved indication [Recovered/Resolved]
  - Self-medication [Recovered/Resolved]
